FAERS Safety Report 6685065-9 (Version None)
Quarter: 2010Q2

REPORT INFORMATION
  Report Type: 
  Country: None (occurrence: None)
  Receive Date: 20100416
  Receipt Date: 20100412
  Transmission Date: 20101027
  Serious: Yes (Other)
  Sender: FDA-Public Use
  Company Number: A0855263A

PATIENT

DRUGS (2)
  1. LAMICTAL [Suspect]
     Indication: DRUG USE FOR UNKNOWN INDICATION
     Route: 048
  2. VALIUM [Suspect]
     Dosage: 3MG UNKNOWN
     Route: 065

REACTIONS (2)
  - FEELING DRUNK [None]
  - STEVENS-JOHNSON SYNDROME [None]
